FAERS Safety Report 7346615-2 (Version None)
Quarter: 2011Q1

REPORT INFORMATION
  Report Type: 
  Country: None (occurrence: None)
  Receive Date: 20110311
  Receipt Date: 20110303
  Transmission Date: 20110831
  Serious: Yes (Other)
  Sender: FDA-Public Use
  Company Number: US-JNJFOC-20110303032

PATIENT
  Sex: Female
  Weight: 54.89 kg

DRUGS (5)
  1. LEVAQUIN [Suspect]
     Indication: COLITIS
     Route: 048
  2. LISINOPRIL [Concomitant]
     Indication: BLOOD PRESSURE
     Route: 048
  3. ACIPHEX [Concomitant]
     Indication: GASTROOESOPHAGEAL REFLUX DISEASE
     Route: 048
  4. AMLODIPINE [Concomitant]
     Indication: BLOOD PRESSURE
     Route: 048
  5. CRESTOR [Concomitant]
     Indication: BLOOD CHOLESTEROL
     Route: 048

REACTIONS (3)
  - NODULE [None]
  - ARTHRALGIA [None]
  - NECK PAIN [None]
